FAERS Safety Report 8305808-8 (Version None)
Quarter: 2012Q2

REPORT INFORMATION
  Report Type: 
  Country: None (occurrence: None)
  Receive Date: 20120423
  Receipt Date: 20120414
  Transmission Date: 20120825
  Serious: Yes (Death, Life-Threatening, Hospitalization, Other)
  Sender: FDA-Public Use
  Company Number: JP-PFIZER INC-2012086237

PATIENT
  Age: 88 Year
  Sex: Female
  Weight: 57.1 kg

DRUGS (3)
  1. ZONISAMIDE [Concomitant]
     Dosage: UNK
     Dates: end: 20120328
  2. DOXAZOSIN MESYLATE [Concomitant]
     Dosage: UNK
     Dates: end: 20120328
  3. LIPITOR [Suspect]
     Dosage: 10 MG, UID/QD
     Route: 048
     Dates: start: 20120323, end: 20120328

REACTIONS (4)
  - DEHYDRATION [None]
  - RHABDOMYOLYSIS [None]
  - HYPERGLYCAEMIA [None]
  - BLOOD UREA INCREASED [None]
